FAERS Safety Report 4281229-2 (Version None)
Quarter: 2004Q1

REPORT INFORMATION
  Report Type: 
  Country: None (occurrence: None)
  Receive Date: 20040113
  Receipt Date: 20031118
  Transmission Date: 20041129
  Serious: No
  Sender: FDA-Public Use
  Company Number: A03200302784

PATIENT
  Sex: Male
  Weight: 84.8226 kg

DRUGS (1)
  1. UROXATRAL [Suspect]
     Dosage: 10 MG QD - ORAL
     Route: 048

REACTIONS (2)
  - HEADACHE [None]
  - VISION BLURRED [None]
